FAERS Safety Report 9437141 (Version 3)
Quarter: 2013Q3

REPORT INFORMATION
  Report Type: Spontaneous
  Country: ZA (occurrence: ZA)
  Receive Date: 20130802
  Receipt Date: 20130925
  Transmission Date: 20140515
  Serious: Yes (Other)
  Sender: FDA-Public Use
  Company Number: ZA-JNJFOC-20130716704

PATIENT
  Age: 10 Year
  Sex: Female
  Weight: 13.61 kg

DRUGS (4)
  1. REVELLEX [Suspect]
     Indication: CROHN^S DISEASE
     Route: 042
     Dates: start: 20121213
  2. REVELLEX [Suspect]
     Indication: CROHN^S DISEASE
     Route: 042
     Dates: end: 20130722
  3. REVELLEX [Suspect]
     Indication: CROHN^S DISEASE
     Route: 042
     Dates: start: 20121207
  4. AZAPRESS [Concomitant]
     Indication: CROHN^S DISEASE
     Route: 048
     Dates: start: 20121207

REACTIONS (1)
  - Extrapulmonary tuberculosis [Not Recovered/Not Resolved]
